FAERS Safety Report 18090951 (Version 1)
Quarter: 2020Q3

REPORT INFORMATION
  Report Type: Spontaneous
  Country: US (occurrence: US)
  Receive Date: 20200729
  Receipt Date: 20200729
  Transmission Date: 20201103
  Serious: No
  Sender: FDA-Public Use
  Company Number: None

PATIENT
  Age: 22 Year
  Sex: Male
  Weight: 71.6 kg

DRUGS (19)
  1. ACETAMINOPHEN 650MG TAB [Concomitant]
     Dates: start: 20200615, end: 20200615
  2. MARAVIROC 300MG [Concomitant]
     Dates: start: 20200615, end: 20200618
  3. PREDNISONE 40MG TAB [Concomitant]
     Dates: start: 20200616, end: 20200619
  4. CHOLECALCIFEROL 25MCG [Concomitant]
     Dates: start: 20200615, end: 20200620
  5. AZITHROMYCIN 500MG IN 250MG NS [Concomitant]
     Dates: start: 20200615, end: 20200615
  6. IODIXANOL 320MG/ML 100ML [Concomitant]
     Dates: start: 20200615, end: 20200615
  7. BENZONATATE CAPSULE 100MG [Concomitant]
     Dates: start: 20200616, end: 20200620
  8. MUCINEX DM 30/600MG [Concomitant]
     Dates: start: 20200615, end: 20200620
  9. ZINC SULFATE CAP 220MG [Concomitant]
     Dates: start: 20200615, end: 20200620
  10. ASPIRIN 81MG TAB [Concomitant]
     Dates: start: 20200615, end: 20200620
  11. TUMS 500MG [Concomitant]
     Dates: start: 20200617, end: 20200618
  12. DOXYCYCLINE 100MG IN 100ML NS [Concomitant]
     Dates: start: 20200616, end: 20200617
  13. METHYLPREDNISOLONE 125MG [Concomitant]
     Dates: start: 20200615, end: 20200615
  14. CEFTRIAXONE 2G IN NS 100ML [Concomitant]
     Dates: start: 20200615, end: 20200619
  15. ENOXAPARIN 40MG SYRNGE [Concomitant]
     Dates: start: 20200615, end: 20200620
  16. VITAMIN C 500MG [Concomitant]
     Dates: start: 20200615, end: 20200620
  17. GUAIFENESIN?CODEINE 100?10MG/5ML [Concomitant]
     Dates: start: 20200615, end: 20200620
  18. NORMAL SALINE 500ML [Concomitant]
     Dates: start: 20200615, end: 20200615
  19. REMDESIVIR. [Suspect]
     Active Substance: REMDESIVIR
     Indication: COVID-19
     Route: 041
     Dates: start: 20200615, end: 20200618

REACTIONS (3)
  - Aspartate aminotransferase increased [None]
  - Liver function test increased [None]
  - Alanine aminotransferase increased [None]

NARRATIVE: CASE EVENT DATE: 20200617
